FAERS Safety Report 16217645 (Version 2)
Quarter: 2019Q2

REPORT INFORMATION
  Report Type: Spontaneous
  Country: US (occurrence: US)
  Receive Date: 20190419
  Receipt Date: 20190424
  Transmission Date: 20190711
  Serious: No
  Sender: FDA-Public Use
  Company Number: US-SA-2019SA106681

PATIENT
  Age: 57 Year
  Sex: Female

DRUGS (10)
  1. DUPIXENT [Suspect]
     Active Substance: DUPILUMAB
     Dosage: 300 MG, QOW
     Route: 058
  2. NASONEX [Concomitant]
     Active Substance: MOMETASONE FUROATE
  3. MELOXICAM. [Concomitant]
     Active Substance: MELOXICAM
  4. OMEPRAZOLE. [Concomitant]
     Active Substance: OMEPRAZOLE
  5. SINGULAIR [Concomitant]
     Active Substance: MONTELUKAST SODIUM
  6. CARVEDILOL. [Concomitant]
     Active Substance: CARVEDILOL
  7. VITAMIN D2 [Concomitant]
     Active Substance: ERGOCALCIFEROL
  8. FUROSEMIDE. [Concomitant]
     Active Substance: FUROSEMIDE
  9. LEVOTHYROXIN [Concomitant]
     Active Substance: LEVOTHYROXINE
  10. SYMBICORT [Concomitant]
     Active Substance: BUDESONIDE\FORMOTEROL FUMARATE DIHYDRATE

REACTIONS (2)
  - Rash [Unknown]
  - Product dose omission [Unknown]

NARRATIVE: CASE EVENT DATE: 20190405
